FAERS Safety Report 4470162-9 (Version None)
Quarter: 2004Q3

REPORT INFORMATION
  Report Type: 
  Country: None (occurrence: None)
  Receive Date: 20040910
  Receipt Date: 20040729
  Transmission Date: 20050211
  Serious: No
  Sender: FDA-Public Use
  Company Number: 2004226803US

PATIENT
  Age: 48 Year
  Sex: Female
  Weight: 63.5 kg

DRUGS (12)
  1. BEXTRA [Suspect]
     Indication: INTERVERTEBRAL DISC DEGENERATION
     Dosage: 20 MG, QD, ORAL
     Route: 048
     Dates: start: 20040715
  2. ASPIRIN [Concomitant]
  3. CLARITIN [Concomitant]
  4. PLAVIX [Concomitant]
  5. ALTACE [Concomitant]
  6. WOMEN'S ONE-A-DAY VITAMIN [Concomitant]
  7. COREG [Concomitant]
  8. PREVACID [Concomitant]
  9. AMITRIPTYLINE HCL [Concomitant]
  10. ADVICOR [Concomitant]
  11. TRAZODONE HCL [Concomitant]
  12. VIOXX [Concomitant]

REACTIONS (2)
  - ABDOMINAL PAIN UPPER [None]
  - MUSCLE CRAMP [None]
